FAERS Safety Report 16258731 (Version 1)
Quarter: 2019Q2

REPORT INFORMATION
  Report Type: Spontaneous
  Country: DE (occurrence: DE)
  Receive Date: 20190430
  Receipt Date: 20190430
  Transmission Date: 20190711
  Serious: Yes (Other)
  Sender: FDA-Public Use
  Company Number: DE-SUN PHARMACEUTICAL INDUSTRIES LTD-2019RR-206474

PATIENT
  Sex: Male
  Weight: 3 kg

DRUGS (1)
  1. CIPROFLOXACIN. [Suspect]
     Active Substance: CIPROFLOXACIN
     Indication: PRODUCT USED FOR UNKNOWN INDICATION
     Dosage: EINMALGABE ()
     Route: 064
     Dates: start: 2016, end: 2016

REACTIONS (2)
  - Foetal exposure during pregnancy [Unknown]
  - Pyloric stenosis [Recovered/Resolved]

NARRATIVE: CASE EVENT DATE: 20161130
